FAERS Safety Report 10874612 (Version 1)
Quarter: 2015Q1

REPORT INFORMATION
  Report Type: Spontaneous
  Country: JP (occurrence: JP)
  Receive Date: 20150227
  Receipt Date: 20150227
  Transmission Date: 20150721
  Serious: Yes (Other)
  Sender: FDA-Public Use
  Company Number: JP-MYLANLABS-2015M1006243

PATIENT

DRUGS (10)
  1. LACTOBACILLUS [Concomitant]
     Active Substance: LACTOBACILLUS ACIDOPHILUS
     Dosage: 2G/DAY; TWICE DAILY, EVERY 12 HOURS EXTENDED FOR 7 DAYS.
     Route: 065
     Dates: start: 20121226
  2. BECLOMETASONE [Concomitant]
     Active Substance: BECLOMETHASONE DIPROPIONATE
     Dosage: 2 DAILY SPRAYS
     Route: 065
     Dates: start: 20121218
  3. MONTELUKAST [Concomitant]
     Active Substance: MONTELUKAST SODIUM
     Dosage: 5 MG/DAY
     Route: 048
     Dates: start: 20121213
  4. CEFDITOREN PIVOXIL. [Concomitant]
     Active Substance: CEFDITOREN PIVOXIL
     Dosage: 200 MG/DAY
     Route: 065
     Dates: start: 20121213
  5. VALPROATE [Interacting]
     Active Substance: VALPROATE SODIUM
     Dosage: 100 MG/DAY
     Route: 065
     Dates: start: 20120201
  6. ORAPENEM [Interacting]
     Active Substance: TEBIPENEM PIVOXIL
     Dosage: 160 MG/DAY (TWICE DAILY, EVERY 12 HOURS)
     Route: 065
     Dates: start: 20121226
  7. VALPROATE [Suspect]
     Active Substance: VALPROATE SODIUM
     Indication: EPILEPSY
     Dosage: 350 MG/DAY
     Route: 065
     Dates: start: 20120314
  8. CARBOCISTEINE [Concomitant]
     Active Substance: CARBOCYSTEINE
     Dosage: 500 MG/DAY
     Route: 065
     Dates: start: 20121213
  9. LACTOBACILLUS [Concomitant]
     Active Substance: LACTOBACILLUS ACIDOPHILUS
     Dosage: 2G/DAY
     Route: 065
     Dates: start: 20121213
  10. MEQUITAZINE [Concomitant]
     Active Substance: MEQUITAZINE
     Dosage: 1.8 MG/DAY
     Route: 065
     Dates: start: 20121213

REACTIONS (3)
  - Drug administration error [Recovered/Resolved]
  - Drug interaction [Recovered/Resolved]
  - Epilepsy [Recovered/Resolved]

NARRATIVE: CASE EVENT DATE: 20121227
